FAERS Safety Report 19928583 (Version 5)
Quarter: 2022Q1

REPORT INFORMATION
  Report Type: Spontaneous
  Country: US (occurrence: US)
  Receive Date: 20211007
  Receipt Date: 20220111
  Transmission Date: 20220424
  Serious: No
  Sender: FDA-Public Use
  Company Number: US-SAGE-2021SAGE000090

PATIENT
  Age: 35 Year
  Sex: Female

DRUGS (5)
  1. ZULRESSO [Suspect]
     Active Substance: BREXANOLONE
     Indication: Depression
     Dosage: BAG 1
     Route: 042
     Dates: start: 20210924, end: 20210924
  2. ZULRESSO [Suspect]
     Active Substance: BREXANOLONE
     Dosage: BAG 2
     Route: 042
     Dates: start: 20210924, end: 20210925
  3. ZULRESSO [Suspect]
     Active Substance: BREXANOLONE
     Dosage: BAG 3
     Route: 042
     Dates: start: 20210925, end: 20210925
  4. ZULRESSO [Suspect]
     Active Substance: BREXANOLONE
     Dosage: BAG 4
     Route: 042
     Dates: start: 20210925, end: 20210926
  5. ZULRESSO [Suspect]
     Active Substance: BREXANOLONE
     Dosage: BAG 5
     Route: 042
     Dates: start: 20210926, end: 20210926

REACTIONS (2)
  - Off label use [Unknown]
  - Product preparation error [Unknown]

NARRATIVE: CASE EVENT DATE: 20210924
